FAERS Safety Report 8389600 (Version 5)
Quarter: 2015Q3

REPORT INFORMATION
  Report Type: Report from Study
  Country: US (occurrence: US)
  Receive Date: 20120203
  Receipt Date: 20150701
  Transmission Date: 20151125
  Serious: Yes (Death, Hospitalization)
  Sender: FDA-Public Use
  Company Number: US-ROCHE-1036272

PATIENT
  Age: 58 Year
  Sex: Female

DRUGS (7)
  1. ATIVAN [Concomitant]
     Active Substance: LORAZEPAM
     Route: 050
  2. CPT-11 [Concomitant]
     Active Substance: IRINOTECAN
     Dosage: 200 MG
     Route: 042
  3. KYTRIL [Concomitant]
     Active Substance: GRANISETRON HYDROCHLORIDE
     Route: 042
  4. ATROPINE. [Concomitant]
     Active Substance: ATROPINE
     Route: 058
  5. CAMPTOSAR [Concomitant]
     Active Substance: IRINOTECAN HYDROCHLORIDE
     Route: 042
  6. AVASTIN [Suspect]
     Active Substance: BEVACIZUMAB
     Indication: BRAIN NEOPLASM MALIGNANT
     Dosage: 5 MG/KG
     Route: 042
  7. ALOXI [Concomitant]
     Active Substance: PALONOSETRON HYDROCHLORIDE
     Route: 065

REACTIONS (6)
  - Fall [Unknown]
  - Tumour haemorrhage [Recovered/Resolved]
  - Nausea [Recovered/Resolved]
  - Headache [Recovered/Resolved]
  - Disease progression [Fatal]
  - Off label use [Unknown]

NARRATIVE: CASE EVENT DATE: 20070206
